FAERS Safety Report 6772616 (Version 4)
Quarter: 2020Q4

REPORT INFORMATION
  Report Type: Spontaneous
  Country: US (occurrence: US)
  Receive Date: 20080926
  Receipt Date: 20201214
  Transmission Date: 20210114
  Serious: Yes (Hospitalization, Other)
  Sender: FDA-Public Use
  Company Number: US-RB-004310-08

PATIENT
  Age: 4 Day
  Sex: Female

DRUGS (17)
  1. OMEPRAZOLE. [Suspect]
     Active Substance: OMEPRAZOLE
     Dosage: UNK
     Dates: start: 20090115, end: 20090212
  2. CEPHAZOLIN [CEFAZOLIN] [Suspect]
     Active Substance: CEFAZOLIN
     Dosage: UNK
     Dates: start: 20120214, end: 20120215
  3. BUPRENEX [Suspect]
     Active Substance: BUPRENORPHINE HYDROCHLORIDE
     Dosage: UP TO 60 MCG/KG/DAY (20 MCG EVERY 8H)
     Route: 040
     Dates: start: 20081202
  4. GLIPIZIDE. [Suspect]
     Active Substance: GLIPIZIDE
     Indication: TYPE 2 DIABETES MELLITUS
     Dosage: 5 MILLIGRAM, BID
     Route: 064
  5. METOCLOPRAMIDE. [Suspect]
     Active Substance: METOCLOPRAMIDE
     Dosage: UNK
     Dates: start: 20090109, end: 20090115
  6. METHADONE [Suspect]
     Active Substance: METHADONE HYDROCHLORIDE
     Indication: PRODUCT USED FOR UNKNOWN INDICATION
     Dosage: UNK
     Route: 064
  7. BUPRENEX [Suspect]
     Active Substance: BUPRENORPHINE HYDROCHLORIDE
     Dosage: 24 MICROGRAMS, UNK
     Route: 060
     Dates: start: 20051124, end: 20051124
  8. PHENOBARBITAL. [Suspect]
     Active Substance: PHENOBARBITAL
     Indication: DRUG WITHDRAWAL SYNDROME NEONATAL
     Dosage: 5 MG/KG EVERY 12 HOURS
     Route: 065
     Dates: start: 20081210
  9. BUPRENEX [Suspect]
     Active Substance: BUPRENORPHINE HYDROCHLORIDE
     Dosage: GRADUALLY INCREASED OVER DAYS TO 25.4 MICROGRAMS EVERY 8 HOURS
     Route: 060
     Dates: start: 200511, end: 200511
  10. RANITIDINE. [Suspect]
     Active Substance: RANITIDINE
     Indication: GASTROOESOPHAGEAL REFLUX DISEASE
     Dosage: UNK
     Route: 065
     Dates: start: 20121206
  11. METOCLOPRAMIDE. [Suspect]
     Active Substance: METOCLOPRAMIDE
     Indication: GASTROOESOPHAGEAL REFLUX DISEASE
     Dosage: UNK
     Route: 065
     Dates: start: 20081215, end: 20081221
  12. ACETAMINOPHEN. [Suspect]
     Active Substance: ACETAMINOPHEN
     Indication: PRODUCT USED FOR UNKNOWN INDICATION
     Dosage: UNK
     Route: 065
  13. BUPRENEX [Suspect]
     Active Substance: BUPRENORPHINE HYDROCHLORIDE
     Indication: DRUG WITHDRAWAL SYNDROME NEONATAL
     Dosage: 12.3 MICROGRAMS EVERY 8 HOURS
     Route: 060
     Dates: start: 20051121, end: 200511
  14. METFORMIN [Suspect]
     Active Substance: METFORMIN HYDROCHLORIDE
     Indication: TYPE 2 DIABETES MELLITUS
     Dosage: 500 MILLIGRAM, BID
     Route: 064
  15. RANITIDINE. [Suspect]
     Active Substance: RANITIDINE
     Dosage: UNK
     Dates: start: 20081230, end: 20090115
  16. OMEPRAZOLE. [Suspect]
     Active Substance: OMEPRAZOLE
     Indication: GASTROOESOPHAGEAL REFLUX DISEASE
     Dosage: UNK
     Route: 065
     Dates: start: 20081211, end: 20081221
  17. CEPHAZOLIN [CEFAZOLIN] [Suspect]
     Active Substance: CEFAZOLIN
     Indication: PARONYCHIA
     Dosage: UNK
     Route: 065
     Dates: start: 20081211, end: 20081221

REACTIONS (13)
  - Aminoaciduria [Unknown]
  - Cytomegalovirus infection [Unknown]
  - Gastrooesophageal reflux disease [Unknown]
  - Developmental delay [Unknown]
  - Infantile vomiting [Unknown]
  - Paronychia [Unknown]
  - Hypotonia neonatal [Unknown]
  - Generalised tonic-clonic seizure [Recovered/Resolved]
  - Pyloric stenosis [Unknown]
  - Subdural haemorrhage [Recovered/Resolved]
  - Hepatitis acute [Unknown]
  - Off label use [Recovered/Resolved]
  - Hypozincaemia [Unknown]

NARRATIVE: CASE EVENT DATE: 20051121
